FAERS Safety Report 4865749-5 (Version None)
Quarter: 2005Q4

REPORT INFORMATION
  Report Type: 
  Country: None (occurrence: None)
  Receive Date: 20051220
  Receipt Date: 20051207
  Transmission Date: 20060501
  Serious: Yes (Other)
  Sender: FDA-Public Use
  Company Number: 13070

PATIENT
  Sex: Female

DRUGS (5)
  1. PACLITAXEL [Suspect]
     Indication: OVARIAN CANCER
  2. TOREM [Concomitant]
  3. NEXIUM [Concomitant]
  4. METHIZOL [Concomitant]
  5. FOLICOMBIN [Concomitant]

REACTIONS (1)
  - DRUG HYPERSENSITIVITY [None]
